FAERS Safety Report 6925383-X (Version None)
Quarter: 2010Q3

REPORT INFORMATION
  Report Type: 
  Country: None (occurrence: None)
  Receive Date: 20100813
  Receipt Date: 20100813
  Transmission Date: 20110219
  Serious: No
  Sender: FDA-Public Use
  Company Number: None

PATIENT
  Sex: Female
  Weight: 57.0171 kg

DRUGS (2)
  1. RECLAST [Suspect]
  2. PRAVASTATIN [Concomitant]

REACTIONS (1)
  - TOOTH FRACTURE [None]
